FAERS Safety Report 8451820 (Version 3)
Quarter: 2017Q4

REPORT INFORMATION
  Report Type: Spontaneous
  Country: US (occurrence: US)
  Receive Date: 20120309
  Receipt Date: 20171003
  Transmission Date: 20180321
  Serious: Yes (Hospitalization, Other)
  Sender: FDA-Public Use
  Company Number: US-ROCHE-1046176

PATIENT
  Age: 60 Year
  Sex: Female

DRUGS (6)
  1. BONIVA [Suspect]
     Active Substance: IBANDRONATE SODIUM
     Indication: OSTEITIS DEFORMANS
  2. FOSAMAX [Suspect]
     Active Substance: ALENDRONATE SODIUM
     Indication: OSTEOPOROSIS
     Route: 048
     Dates: start: 200311, end: 200701
  3. FOSAMAX [Suspect]
     Active Substance: ALENDRONATE SODIUM
     Indication: OSTEITIS DEFORMANS
  4. BONIVA [Suspect]
     Active Substance: IBANDRONATE SODIUM
     Indication: OSTEOPOROSIS
     Route: 048
     Dates: start: 200701, end: 200807
  5. FOSAMAX [Suspect]
     Active Substance: ALENDRONATE SODIUM
     Indication: OSTEOPENIA
     Route: 048
     Dates: start: 200311, end: 200612
  6. BONIVA [Suspect]
     Active Substance: IBANDRONATE SODIUM
     Indication: OSTEOPENIA

REACTIONS (6)
  - Low turnover osteopathy [Unknown]
  - Femur fracture [Unknown]
  - Anxiety [Unknown]
  - Fibula fracture [Unknown]
  - Femur fracture [Unknown]
  - Depression [Unknown]

NARRATIVE: CASE EVENT DATE: 200612
